FAERS Safety Report 8763280 (Version 2)
Quarter: 2012Q4

REPORT INFORMATION
  Report Type: 
  Country: FR (occurrence: FR)
  Receive Date: 20120831
  Receipt Date: 20121127
  Transmission Date: 20130627
  Serious: Yes (Hospitalization)
  Sender: FDA-Public Use
  Company Number: FR-ACCORD-014576

PATIENT
  Age: 48 Year
  Sex: Male

DRUGS (5)
  1. GEMCITABINE [Suspect]
     Indication: LUNG ADENOCARCINOMA
     Route: 042
     Dates: start: 20120722, end: 20120722
  2. ROCEPHINE [Concomitant]
     Indication: SEPSIS
     Dates: start: 20120725, end: 20120727
  3. LEVETIRACETAM [Suspect]
     Indication: EPILEPSY
     Dosage: 500 mg twice a day (in the morning and at night)
     Route: 048
     Dates: start: 20120725, end: 20120727
  4. FLAGYL [Concomitant]
     Indication: SEPSIS
     Dates: start: 20120725, end: 20120727
  5. DOLIPRANE [Suspect]
     Indication: PAIN
     Dosage: Dose: 1 g as needed Strength: 500mg
     Route: 048
     Dates: end: 20120727

REACTIONS (1)
  - Hepatocellular injury [Unknown]
